FAERS Safety Report 9875372 (Version 1)
Quarter: 2014Q1

REPORT INFORMATION
  Report Type: Spontaneous
  Country: US (occurrence: None)
  Receive Date: 20140205
  Receipt Date: 20140205
  Transmission Date: 20141002
  Serious: Yes (Death)
  Sender: FDA-Public Use
  Company Number: None

PATIENT
  Age: 41 Year
  Sex: Male

DRUGS (2)
  1. GEODON [Suspect]
     Indication: SCHIZOAFFECTIVE DISORDER
     Dosage: 2 CAPSULES BID ORAL?
     Route: 048
  2. DAYTRANA [Suspect]
     Indication: ATTENTION DEFICIT/HYPERACTIVITY DISORDER
     Dosage: 2 PATCHES IN AM AND REMOVE QHS
     Route: 062

REACTIONS (6)
  - Arteriosclerosis coronary artery [None]
  - Obesity [None]
  - Tobacco user [None]
  - Hyperlipidaemia [None]
  - Alcohol use [None]
  - Sudden death [None]
